FAERS Safety Report 20750746 (Version 9)
Quarter: 2025Q2

REPORT INFORMATION
  Report Type: Spontaneous
  Country: US (occurrence: US)
  Receive Date: 20220426
  Receipt Date: 20250507
  Transmission Date: 20250716
  Serious: Yes (Other)
  Sender: PFIZER
  Company Number: US-PFIZER INC-202200617470

PATIENT
  Age: 71 Year
  Sex: Female

DRUGS (1)
  1. XELJANZ XR [Suspect]
     Active Substance: TOFACITINIB CITRATE
     Dosage: 11 MG TABLET, EXTENDED RELEASE TAKE 1 TABLET BY MOUTH DAILY
     Route: 048

REACTIONS (13)
  - Parkinson^s disease [Not Recovered/Not Resolved]
  - Transient ischaemic attack [Unknown]
  - Intervertebral disc degeneration [Unknown]
  - Back pain [Recovering/Resolving]
  - Urinary tract infection [Unknown]
  - Joint stiffness [Unknown]
  - Musculoskeletal stiffness [Not Recovered/Not Resolved]
  - Brain fog [Unknown]
  - Synovitis [Unknown]
  - Confusional state [Unknown]
  - Arthralgia [Unknown]
  - Joint swelling [Unknown]
  - Muscular weakness [Unknown]

NARRATIVE: CASE EVENT DATE: 20240101
